FAERS Safety Report 24809577 (Version 1)
Quarter: 2025Q1

REPORT INFORMATION
  Report Type: Spontaneous
  Country: DE (occurrence: DE)
  Receive Date: 20250106
  Receipt Date: 20250106
  Transmission Date: 20250409
  Serious: Yes (Hospitalization, Other)
  Sender: AUROBINDO
  Company Number: DE-ROCHE-10000158253

PATIENT
  Age: 63 Year
  Sex: Male
  Weight: 67 kg

DRUGS (2)
  1. CARBOPLATIN [Suspect]
     Active Substance: CARBOPLATIN
     Indication: Neoplasm malignant
     Route: 042
     Dates: start: 20240930
  2. PEMETREXED [Suspect]
     Active Substance: PEMETREXED
     Indication: Neoplasm malignant
     Route: 042
     Dates: start: 20240930, end: 20240930

REACTIONS (2)
  - Empyema [Recovered/Resolved]
  - Neoplasm [Recovered/Resolved]

NARRATIVE: CASE EVENT DATE: 20241019
